FAERS Safety Report 23152437 (Version 2)
Quarter: 2024Q2

REPORT INFORMATION
  Report Type: Report from Study
  Country: KR (occurrence: KR)
  Receive Date: 20231107
  Receipt Date: 20240624
  Transmission Date: 20240715
  Serious: Yes (Death, Other)
  Sender: FDA-Public Use
  Company Number: KR-ROCHE-3451421

PATIENT

DRUGS (6)
  1. PERTUZUMAB [Suspect]
     Active Substance: PERTUZUMAB
     Indication: Breast cancer metastatic
     Route: 065
  2. PERTUZUMAB [Suspect]
     Active Substance: PERTUZUMAB
     Indication: Metastatic gastric cancer
  3. PERTUZUMAB [Suspect]
     Active Substance: PERTUZUMAB
     Indication: Breast cancer
  4. TRASTUZUMAB [Suspect]
     Active Substance: TRASTUZUMAB
     Indication: Breast cancer metastatic
     Route: 065
  5. TRASTUZUMAB [Suspect]
     Active Substance: TRASTUZUMAB
     Indication: Metastatic gastric cancer
  6. TRASTUZUMAB [Suspect]
     Active Substance: TRASTUZUMAB
     Indication: Breast cancer

REACTIONS (17)
  - Diarrhoea [Unknown]
  - Alopecia [Unknown]
  - Anaemia [Unknown]
  - Nausea [Unknown]
  - Ejection fraction decreased [Unknown]
  - Cardiac dysfunction [Unknown]
  - Infusion related reaction [Unknown]
  - Haematotoxicity [Unknown]
  - Lung disorder [Unknown]
  - Abdominal discomfort [Unknown]
  - Abdominal pain [Unknown]
  - Dilated cardiomyopathy [Unknown]
  - Hypotension [Unknown]
  - Loss of consciousness [Unknown]
  - Pneumonia [Unknown]
  - Weight decreased [Unknown]
  - Septic shock [Fatal]
